FAERS Safety Report 7120636-7 (Version None)
Quarter: 2010Q4

REPORT INFORMATION
  Report Type: 
  Country: None (occurrence: None)
  Receive Date: 20101122
  Receipt Date: 20101122
  Transmission Date: 20110411
  Serious: No
  Sender: FDA-Public Use
  Company Number: None

PATIENT
  Sex: Female
  Weight: 137.2 kg

DRUGS (3)
  1. TYSABRI [Suspect]
     Indication: MULTIPLE SCLEROSIS
     Dosage: 300 MG 4-9-10 IV ; DRUG IS ON HOLD
     Route: 042
     Dates: end: 20100409
  2. ALEVE [Concomitant]
  3. MEDRAL DOSEPAC [Concomitant]

REACTIONS (6)
  - CONTUSION [None]
  - HAEMATOCHEZIA [None]
  - OEDEMA PERIPHERAL [None]
  - PETECHIAE [None]
  - PURPURA [None]
  - RASH ERYTHEMATOUS [None]
